FAERS Safety Report 10145735 (Version 1)
Quarter: 2014Q2

REPORT INFORMATION
  Report Type: Spontaneous
  Country: US (occurrence: US)
  Receive Date: 20140501
  Receipt Date: 20140501
  Transmission Date: 20141212
  Serious: Yes (Hospitalization, Other)
  Sender: FDA-Public Use
  Company Number: PHEH2014US008335

PATIENT
  Sex: Male

DRUGS (8)
  1. RECLAST [Suspect]
     Indication: OSTEOPOROSIS
     Dosage: 1 YEAR
     Route: 042
     Dates: start: 201302
  2. CITRACAL [Concomitant]
     Dosage: UNK UKN, UNK
  3. VITAMIN D3 [Concomitant]
     Dosage: 2000 IU, UNK
  4. PRESERVISION [Concomitant]
     Dosage: UNK UKN, UNK
  5. ALLOPURINOL [Concomitant]
     Dosage: UNK UKN, UNK
  6. CLOPIDOGREL [Concomitant]
     Dosage: UNK UKN, UNK
  7. LORAZEPAM [Concomitant]
     Dosage: UNK UKN, UNK
  8. METOPROLOL [Concomitant]
     Dosage: UNK UKN, UNK

REACTIONS (7)
  - Muscle disorder [Unknown]
  - Hypoaesthesia [Unknown]
  - Chills [Unknown]
  - Paraesthesia [Unknown]
  - Tooth loss [Unknown]
  - Macular degeneration [Unknown]
  - Arthritis [Unknown]
